FAERS Safety Report 9372135 (Version 1)
Quarter: 2013Q2

REPORT INFORMATION
  Report Type: Spontaneous
  Country: GB (occurrence: GB)
  Receive Date: 20130627
  Receipt Date: 20130627
  Transmission Date: 20140414
  Serious: Yes (Other)
  Sender: FDA-Public Use
  Company Number: GB-PFIZER INC-2012167390

PATIENT
  Age: 68 Year
  Sex: Male

DRUGS (2)
  1. ISTIN [Suspect]
     Indication: HYPERTENSION
     Dosage: 5 MG DAILY
     Route: 065
  2. AMLODIPINE BESILATE [Suspect]
     Dosage: UNK
     Route: 065

REACTIONS (1)
  - Parkinson^s disease [Unknown]
